FAERS Safety Report 10333624 (Version 1)
Quarter: 2014Q3

REPORT INFORMATION
  Report Type: Spontaneous
  Country: US (occurrence: US)
  Receive Date: 20140723
  Receipt Date: 20140723
  Transmission Date: 20150326
  Serious: Yes (Hospitalization, Other)
  Sender: FDA-Public Use
  Company Number: US-ACCORD-024856

PATIENT
  Age: 73 Year
  Sex: Female

DRUGS (8)
  1. METHOTREXATE [Suspect]
     Active Substance: METHOTREXATE
     Indication: RHEUMATOID ARTHRITIS
     Dosage: PREVIOUS DOSE- 7.5 MG WEEKLY WHICH WAS INCREASED TO  2.5 MG DAILY APPROXIMATELY TWO MONTHS PRIOR
  2. ACETYLSALICYLIC ACID [Concomitant]
     Active Substance: ASPIRIN
  3. SIMVASTATIN. [Concomitant]
     Active Substance: SIMVASTATIN
  4. FUROSEMIDE. [Concomitant]
     Active Substance: FUROSEMIDE
  5. CLOPIDOGREL [Concomitant]
     Active Substance: CLOPIDOGREL BISULFATE
  6. CARVEDILOL/CARVEDILOL HYDROCHLODRIDE [Concomitant]
  7. FOLIC ACID. [Concomitant]
     Active Substance: FOLIC ACID
  8. ENALAPRIL [Concomitant]
     Active Substance: ENALAPRIL

REACTIONS (8)
  - Ulcer haemorrhage [Recovering/Resolving]
  - Gingival bleeding [Recovering/Resolving]
  - Pancytopenia [Recovered/Resolved]
  - Stomatitis [Recovering/Resolving]
  - Odynophagia [Recovering/Resolving]
  - Contusion [Recovering/Resolving]
  - Epistaxis [Recovering/Resolving]
  - Febrile neutropenia [Recovering/Resolving]
